FAERS Safety Report 5939845-5 (Version None)
Quarter: 2008Q4

REPORT INFORMATION
  Report Type: 
  Country: None (occurrence: None)
  Receive Date: 20081030
  Receipt Date: 20081030
  Transmission Date: 20090506
  Serious: Yes (Life-Threatening)
  Sender: FDA-Public Use
  Company Number: None

PATIENT
  Age: 50 Year
  Sex: Female
  Weight: 81 kg

DRUGS (11)
  1. LOVENOX [Suspect]
     Indication: THROMBOSIS PROPHYLAXIS
     Dates: start: 20081024, end: 20081028
  2. NOREPINEPHRINE [Concomitant]
  3. MIDAZOLAM HCL [Concomitant]
  4. FENTANYL [Concomitant]
  5. ANASTROZOLE [Concomitant]
  6. HYDROCORTISONE [Concomitant]
  7. LEVAQUIN [Concomitant]
  8. CALCIUM [Concomitant]
  9. LEVOXYL [Concomitant]
  10. METRONIDAZOLE [Concomitant]
  11. NEXIUM [Concomitant]

REACTIONS (1)
  - INTRA-ABDOMINAL HAEMATOMA [None]
